FAERS Safety Report 6706770-1 (Version None)
Quarter: 2010Q2

REPORT INFORMATION
  Report Type: 
  Country: None (occurrence: None)
  Receive Date: 20100503
  Receipt Date: 20100429
  Transmission Date: 20101027
  Serious: Yes (Hospitalization, Other)
  Sender: FDA-Public Use
  Company Number: US-TEVA-230724USA

PATIENT
  Age: 37 Year
  Sex: Female

DRUGS (3)
  1. PARAGARD T 380A [Suspect]
     Indication: CONTRACEPTION
     Dates: start: 20090204, end: 20090501
  2. RISPERIDONE [Concomitant]
  3. LAMOTRIGINE [Concomitant]

REACTIONS (1)
  - TOXIC SHOCK SYNDROME [None]
